FAERS Safety Report 9736670 (Version 2)
Quarter: 2015Q3

REPORT INFORMATION
  Report Type: Spontaneous
  Country: US (occurrence: US)
  Receive Date: 20131206
  Receipt Date: 20150804
  Transmission Date: 20151125
  Serious: No
  Sender: FDA-Public Use
  Company Number: US-GILEAD-2009-0022900

PATIENT
  Age: 58 Year
  Sex: Female
  Weight: 147.87 kg

DRUGS (23)
  1. PRILOSEC [Concomitant]
     Active Substance: OMEPRAZOLE MAGNESIUM
  2. DOCUSATE CALCIUM. [Concomitant]
     Active Substance: DOCUSATE CALCIUM
  3. METOCLOPRAMIDE. [Concomitant]
     Active Substance: METOCLOPRAMIDE
  4. NITROGLYCERIN. [Concomitant]
     Active Substance: NITROGLYCERIN
  5. PHAZYME [Concomitant]
     Active Substance: DIMETHICONE 410
  6. LETAIRIS [Suspect]
     Active Substance: AMBRISENTAN
     Indication: PULMONARY ARTERIAL HYPERTENSION
     Route: 048
     Dates: start: 20080702
  7. DARVOCET N-100 [Concomitant]
  8. ALBUTEROL. [Concomitant]
     Active Substance: ALBUTEROL
  9. ^ANTIBIOTIC CREAM^ [Concomitant]
  10. APAP [Concomitant]
     Active Substance: ACETAMINOPHEN
  11. ^RESCUE INHALER^ [Concomitant]
  12. GABAPENTIN. [Concomitant]
     Active Substance: GABAPENTIN
  13. ASPIRIN. [Concomitant]
     Active Substance: ASPIRIN
  14. AMOXICILLIN. [Concomitant]
     Active Substance: AMOXICILLIN
  15. CYCLOBENZAPRINE [Concomitant]
     Active Substance: CYCLOBENZAPRINE
  16. PREDNISONE. [Concomitant]
     Active Substance: PREDNISONE
  17. LEVOTHYROXINE. [Concomitant]
     Active Substance: LEVOTHYROXINE
  18. DIGOXIN. [Concomitant]
     Active Substance: DIGOXIN
  19. NITROSTAT [Concomitant]
     Active Substance: NITROGLYCERIN
  20. RANITIDINE [Concomitant]
     Active Substance: RANITIDINE\RANITIDINE HYDROCHLORIDE
  21. LORTAB [Concomitant]
     Active Substance: ACETAMINOPHEN\HYDROCODONE BITARTRATE
  22. TRAZODONE [Concomitant]
     Active Substance: TRAZODONE HYDROCHLORIDE
  23. THERATEARS [Concomitant]
     Active Substance: CARBOXYMETHYLCELLULOSE SODIUM

REACTIONS (2)
  - Palpitations [Unknown]
  - Dyspnoea [Unknown]
